FAERS Safety Report 25433777 (Version 1)
Quarter: 2025Q2

REPORT INFORMATION
  Report Type: Spontaneous
  Country: BG (occurrence: BG)
  Receive Date: 20250613
  Receipt Date: 20250613
  Transmission Date: 20250717
  Serious: Yes (Hospitalization)
  Sender: BOEHRINGER INGELHEIM
  Company Number: BG-BoehringerIngelheim-2025-BI-075740

PATIENT
  Age: 62 Year
  Sex: Female
  Weight: 78 kg

DRUGS (6)
  1. GLYXAMBI [Suspect]
     Active Substance: EMPAGLIFLOZIN\LINAGLIPTIN
     Indication: Type 2 diabetes mellitus
     Dates: start: 202407, end: 202410
  2. Levothyroxine 100/125 ?g [Concomitant]
     Indication: Product used for unknown indication
  3. Cholecalciferol 20000 IU [Concomitant]
     Indication: Product used for unknown indication
  4. Calcium Carbonate 600 mg [Concomitant]
     Indication: Product used for unknown indication
  5. statin/ezetimibe [Concomitant]
     Indication: Product used for unknown indication
  6. basal-bolus insulin regimen [Concomitant]
     Indication: Product used for unknown indication

REACTIONS (2)
  - Hyperglycaemia [Recovered/Resolved]
  - Blood triglycerides increased [Recovering/Resolving]

NARRATIVE: CASE EVENT DATE: 20241001
